FAERS Safety Report 9645244 (Version 1)
Quarter: 2013Q4

REPORT INFORMATION
  Report Type: Spontaneous
  Country: US (occurrence: None)
  Receive Date: 20131023
  Receipt Date: 20131023
  Transmission Date: 20140711
  Serious: Yes (Hospitalization, Other)
  Sender: FDA-Public Use
  Company Number: 2013US00725

PATIENT
  Age: 19 Month
  Sex: Male
  Weight: 11.4 kg

DRUGS (1)
  1. LAMOTRIGINE (LAMOTRIGINE) TABLET [Suspect]

REACTIONS (7)
  - Medication error [None]
  - Vomiting [None]
  - Confusional state [None]
  - Dysarthria [None]
  - Crying [None]
  - Agitation [None]
  - Toxicity to various agents [None]
